FAERS Safety Report 4820909-4 (Version None)
Quarter: 2005Q4

REPORT INFORMATION
  Report Type: 
  Country: None (occurrence: None)
  Receive Date: 20051104
  Receipt Date: 20050825
  Transmission Date: 20060501
  Serious: Yes (Other)
  Sender: FDA-Public Use
  Company Number: 200516349US

PATIENT
  Sex: Female
  Weight: 90 kg

DRUGS (6)
  1. ARAVA [Suspect]
     Indication: RHEUMATOID ARTHRITIS
     Dates: start: 20050425
  2. ARAVA [Suspect]
     Dates: start: 20050524
  3. ARAVA [Suspect]
     Dates: start: 20050620
  4. REMICADE [Concomitant]
     Dates: start: 20050802, end: 20050816
  5. VERELAN [Concomitant]
  6. NEXIUM [Concomitant]
     Indication: GASTRIC DISORDER
     Dosage: DOSE: UNKNOWN

REACTIONS (4)
  - PAPILLOEDEMA [None]
  - RETINAL HAEMORRHAGE [None]
  - URTICARIA [None]
  - VISION BLURRED [None]
